FAERS Safety Report 15378739 (Version 2)
Quarter: 2018Q4

REPORT INFORMATION
  Report Type: Spontaneous
  Country: GB (occurrence: FR)
  Receive Date: 20180913
  Receipt Date: 20180919
  Transmission Date: 20190204
  Serious: Yes (Hospitalization)
  Sender: FDA-Public Use
  Company Number: FR-FRESENIUS KABI-FK201809133

PATIENT
  Sex: Female

DRUGS (40)
  1. SODIUM CHLORIDE (MANUFACTURER UNKNOWN) [Suspect]
     Active Substance: SODIUM CHLORIDE
     Indication: PARENTERAL NUTRITION
     Dosage: 110ML
     Route: 065
     Dates: start: 201610
  2. PHYTOMENADIONE [Suspect]
     Active Substance: PHYTONADIONE
     Indication: PARENTERAL NUTRITION
     Dosage: 10MG
     Route: 065
     Dates: start: 201610
  3. METHIONINE [Suspect]
     Active Substance: METHIONINE
     Indication: PARENTERAL NUTRITION
     Dosage: UNKNOWN
     Route: 065
     Dates: start: 201610
  4. ISOLEUCINE [Suspect]
     Active Substance: ISOLEUCINE
     Indication: PARENTERAL NUTRITION
     Dosage: UNKNOWN
     Route: 065
     Dates: start: 201610
  5. FOLIC ACID. [Suspect]
     Active Substance: FOLIC ACID
     Indication: PARENTERAL NUTRITION
     Dosage: UNKNOWN
     Route: 065
     Dates: start: 201610
  6. ASPARTIC ACID [Suspect]
     Active Substance: ASPARTIC ACID
     Indication: PARENTERAL NUTRITION
     Dosage: UNKNOWN
     Route: 065
     Dates: start: 201610
  7. NICOTINAMIDE [Suspect]
     Active Substance: NIACINAMIDE
     Indication: PARENTERAL NUTRITION
     Dosage: UNKNOWN
     Route: 065
     Dates: start: 201610
  8. GLUTAMIC ACID [Suspect]
     Active Substance: GLUTAMIC ACID
     Indication: PARENTERAL NUTRITION
     Dosage: UNKNOWN
     Route: 065
     Dates: start: 201610
  9. SERINE. [Suspect]
     Active Substance: SERINE
     Indication: PARENTERAL NUTRITION
     Dosage: UNKNOWN
     Route: 065
     Dates: start: 201610
  10. SODIUM LACTATE. [Suspect]
     Active Substance: SODIUM LACTATE
     Indication: PARENTERAL NUTRITION
     Dosage: UNKNOWN
     Route: 065
     Dates: start: 201610
  11. HISTIDINE [Suspect]
     Active Substance: HISTIDINE
     Indication: PARENTERAL NUTRITION
     Dosage: UNKNOWN
     Route: 065
     Dates: start: 201610
  12. RETINOL PALMITATE [Suspect]
     Active Substance: VITAMIN A PALMITATE
     Indication: PARENTERAL NUTRITION
     Dosage: UNKNOWN
     Route: 065
     Dates: start: 201610
  13. ARGININE [Suspect]
     Active Substance: ARGININE
     Indication: PARENTERAL NUTRITION
     Dosage: UNKNOWN
     Route: 065
     Dates: start: 201610
  14. GLUCOSE (NOT SPECIFIED) [Suspect]
     Active Substance: DEXTROSE
     Indication: PARENTERAL NUTRITION
     Dosage: 700ML
     Route: 065
     Dates: start: 201610
  15. PROLINE [Suspect]
     Active Substance: PROLINE
     Indication: PARENTERAL NUTRITION
     Dosage: UNKNOWN
     Route: 065
     Dates: start: 201610
  16. THREONINE [Suspect]
     Active Substance: THREONINE
     Indication: PARENTERAL NUTRITION
     Dosage: UNKNOWN
     Route: 065
     Dates: start: 201610
  17. CYSTEINE HYDROCHLORIDE. [Suspect]
     Active Substance: CYSTEINE HYDROCHLORIDE
     Indication: PARENTERAL NUTRITION
     Dosage: UNKNOWN
     Route: 065
     Dates: start: 201610
  18. PYRIDOXINE HYDROCHLORIDE. [Suspect]
     Active Substance: PYRIDOXINE HYDROCHLORIDE
     Indication: PARENTERAL NUTRITION
     Dosage: UNKNOWN
     Route: 065
     Dates: start: 201610
  19. SMOFLIPID [Suspect]
     Active Substance: FISH OIL\MEDIUM-CHAIN TRIGLYCERIDES\OLIVE OIL\SOYBEAN OIL
     Indication: PARENTERAL NUTRITION
     Dosage: 150ML
     Route: 065
     Dates: start: 201610
  20. POTASSIUM CHLORIDE (NOT SPECIFIED) [Suspect]
     Active Substance: POTASSIUM CHLORIDE
     Indication: PARENTERAL NUTRITION
     Dosage: 134ML
     Route: 065
     Dates: start: 201610
  21. LEVOCARNITINE. [Suspect]
     Active Substance: LEVOCARNITINE
     Indication: PARENTERAL NUTRITION
     Dosage: 5ML
     Route: 065
     Dates: start: 201610
  22. RIBOFLAVIN SODIUM PHOSPHATE [Suspect]
     Active Substance: RIBOFLAVIN 5^-PHOSPHATE SODIUM
     Indication: PARENTERAL NUTRITION
     Dosage: UNKNOWN
     Route: 065
     Dates: start: 201610
  23. PHENYLALANINE [Suspect]
     Active Substance: PHENYLALANINE
     Indication: PARENTERAL NUTRITION
     Dosage: UNKNOWN
     Route: 065
     Dates: start: 201610
  24. ASCORBIC ACID. [Suspect]
     Active Substance: ASCORBIC ACID
     Indication: PARENTERAL NUTRITION
     Dosage: UNKNOWN
     Route: 065
     Dates: start: 201610
  25. GLUCOSE 1-PHOSPHATE DISODIUM [Suspect]
     Active Substance: .ALPHA.-GLUCOSE-1-PHOSPHATE
     Indication: PARENTERAL NUTRITION
     Dosage: UNKNOWN
     Route: 065
     Dates: start: 201610
  26. BIOTIN [Suspect]
     Active Substance: BIOTIN
     Indication: PARENTERAL NUTRITION
     Dosage: UNKNOWN
     Route: 065
     Dates: start: 201610
  27. TRYPTOPHAN, L- [Suspect]
     Active Substance: TRYPTOPHAN
     Indication: PARENTERAL NUTRITION
     Dosage: UNKNOWN
     Route: 065
     Dates: start: 201610
  28. TYROSINE [Suspect]
     Active Substance: TYROSINE
     Indication: PARENTERAL NUTRITION
     Dosage: UNKNOWN
     Route: 065
     Dates: start: 201610
  29. DEXPANTHENOL. [Suspect]
     Active Substance: DEXPANTHENOL
     Indication: PARENTERAL NUTRITION
     Dosage: UNKNOWN
     Route: 065
     Dates: start: 201610
  30. AMINO ACIDS NOS [Suspect]
     Active Substance: AMINO ACIDS
     Indication: PARENTERAL NUTRITION
     Dosage: 560ML
     Route: 065
     Dates: start: 201610
  31. CYANOCOBALAMIN. [Suspect]
     Active Substance: CYANOCOBALAMIN
     Indication: PARENTERAL NUTRITION
     Dosage: UNKNOWN
     Route: 065
     Dates: start: 201610
  32. MAGNESIUM CHLORIDE. [Suspect]
     Active Substance: MAGNESIUM CHLORIDE
     Indication: PARENTERAL NUTRITION
     Dosage: 27 ML  THERE ALSO REPORT 500ML
     Route: 065
     Dates: start: 201610
  33. GLYCINE. [Suspect]
     Active Substance: GLYCINE
     Indication: PARENTERAL NUTRITION
     Dosage: UNKNOWN
     Route: 065
     Dates: start: 201610
  34. ORNITHINE HYDROCHLORIDE [Suspect]
     Active Substance: ORNITHINE HYDROCHLORIDE
     Indication: PARENTERAL NUTRITION
     Dosage: UNKNOWN
     Route: 065
     Dates: start: 201610
  35. LEUCINE [Suspect]
     Active Substance: LEUCINE
     Indication: PARENTERAL NUTRITION
     Dosage: UNKNOWN
     Route: 065
     Dates: start: 201610
  36. ALANINE [Suspect]
     Active Substance: ALANINE
     Indication: PARENTERAL NUTRITION
     Dosage: UNKNOWN
     Route: 065
     Dates: start: 201610
  37. COLECALCIFEROL [Suspect]
     Active Substance: CHOLECALCIFEROL
     Indication: PARENTERAL NUTRITION
     Dosage: UNKNOWN
     Route: 065
     Dates: start: 201610
  38. VALINE [Suspect]
     Active Substance: VALINE
     Indication: PARENTERAL NUTRITION
     Dosage: UNKNOWN
     Route: 065
     Dates: start: 201610
  39. LYSINE [Suspect]
     Active Substance: LYSINE
     Indication: PARENTERAL NUTRITION
     Dosage: UNKNOWN
     Route: 065
     Dates: start: 201610
  40. SELENIUM [Suspect]
     Active Substance: SELENIUM
     Indication: PARENTERAL NUTRITION
     Dosage: 5ML
     Route: 065
     Dates: start: 201610

REACTIONS (4)
  - Thirst [Unknown]
  - Food craving [Unknown]
  - Intentional product use issue [Unknown]
  - Malaise [Unknown]

NARRATIVE: CASE EVENT DATE: 201807
